FAERS Safety Report 11344896 (Version 1)
Quarter: 2015Q3

REPORT INFORMATION
  Report Type: Spontaneous
  Country: US (occurrence: None)
  Receive Date: 20150805
  Receipt Date: 20150805
  Transmission Date: 20151125
  Serious: Yes (Disabling)
  Sender: FDA-Public Use
  Company Number: None

PATIENT
  Age: 52 Year
  Sex: Male
  Weight: 98.43 kg

DRUGS (4)
  1. ^OVER 50^ DAILY MULTIPLE VITAMINS [Concomitant]
  2. OMEGA - 3 FISH OIL CAPS [Concomitant]
  3. AMLODIPINE [Concomitant]
     Active Substance: AMLODIPINE BESYLATE
  4. CIPRO [Suspect]
     Active Substance: CIPROFLOXACIN HYDROCHLORIDE
     Indication: LABYRINTHITIS
     Dosage: 1 PILL
     Route: 048
     Dates: start: 20021015, end: 20040415

REACTIONS (5)
  - Neuropathy peripheral [None]
  - Back pain [None]
  - Asthenia [None]
  - Pain in extremity [None]
  - Tinnitus [None]

NARRATIVE: CASE EVENT DATE: 20031124
